FAERS Safety Report 20119591 (Version 2)
Quarter: 2022Q1

REPORT INFORMATION
  Report Type: Report from Study
  Country: BR (occurrence: BR)
  Receive Date: 20211126
  Receipt Date: 20220103
  Transmission Date: 20220423
  Serious: Yes (Other)
  Sender: FDA-Public Use
  Company Number: BR-NOVARTISPH-NVSC2021BR267762

PATIENT
  Age: 75 Year
  Sex: Female

DRUGS (8)
  1. ANASTROZOLE [Suspect]
     Active Substance: ANASTROZOLE
     Indication: Product used for unknown indication
     Dosage: UNK
     Route: 065
  2. DOXORUBICIN [Suspect]
     Active Substance: DOXORUBICIN
     Indication: Product used for unknown indication
     Dosage: UNK (4 CYCLES)
     Route: 065
  3. RIBOCICLIB [Suspect]
     Active Substance: RIBOCICLIB
     Indication: Product used for unknown indication
     Dosage: 600 MG, QD
     Route: 065
  4. ZOLEDRONIC ACID [Suspect]
     Active Substance: ZOLEDRONIC ACID
     Indication: Hypercalcaemia therapy
     Dosage: UNK (TRIMESTER)
     Route: 065
     Dates: start: 20210224
  5. FULVESTRANT [Suspect]
     Active Substance: FULVESTRANT
     Indication: Cancer hormonal therapy
     Dosage: 500 MG, QMO (EVERY 28 DAY)
     Route: 065
     Dates: start: 20210226
  6. TAXOL [Concomitant]
     Active Substance: PACLITAXEL
     Indication: Product used for unknown indication
     Dosage: UNK (12 WEEKS)
     Route: 065
  7. CYCLOPHOSPHAMIDE [Concomitant]
     Active Substance: CYCLOPHOSPHAMIDE
     Indication: Product used for unknown indication
     Dosage: UNK (4 CYCLES)
     Route: 065
  8. IMMUNOGLOBULIN [Concomitant]
     Indication: Product used for unknown indication
     Dosage: UNK (5 CONSECUTIVE DAYS (DOSE ADMINISTERED WEEKLY) (ENDOVENOSE)
     Route: 065
     Dates: end: 202110

REACTIONS (13)
  - Quadriplegia [Unknown]
  - Thrombocytopenia [Unknown]
  - General physical health deterioration [Unknown]
  - Weight decreased [Unknown]
  - Nervous system disorder [Unknown]
  - Hypokinesia [Unknown]
  - Areflexia [Unknown]
  - Bone lesion [Recovering/Resolving]
  - Axonal neuropathy [Unknown]
  - Carbohydrate antigen 15-3 increased [Unknown]
  - Dysphagia [Recovering/Resolving]
  - Hypercalcaemia [Unknown]
  - Disease progression [Unknown]
